FAERS Safety Report 6738076-9 (Version None)
Quarter: 2010Q2

REPORT INFORMATION
  Report Type: 
  Country: None (occurrence: None)
  Receive Date: 20100521
  Receipt Date: 20100504
  Transmission Date: 20101027
  Serious: Yes (Disabling)
  Sender: FDA-Public Use
  Company Number: 2009RR-22790

PATIENT
  Age: 20 Year
  Sex: Female

DRUGS (3)
  1. GABAPENTIN [Suspect]
     Indication: PAIN
     Dosage: 300 MG MILLIGRAM (S), 4 IN 1 DAY ORAL
     Route: 048
     Dates: start: 20081102
  2. CEFADROXIL [Concomitant]
  3. PERENTEROL [Concomitant]

REACTIONS (4)
  - CONFUSIONAL STATE [None]
  - FATIGUE [None]
  - NARCOLEPSY [None]
  - SOMNOLENCE [None]
